FAERS Safety Report 6260768-9 (Version None)
Quarter: 2009Q3

REPORT INFORMATION
  Report Type: 
  Country: None (occurrence: None)
  Receive Date: 20090706
  Receipt Date: 20090623
  Transmission Date: 20100115
  Serious: Yes (Life-Threatening)
  Sender: FDA-Public Use
  Company Number: 2009-02510

PATIENT
  Age: 57 Year
  Sex: Male
  Weight: 99.2 kg

DRUGS (7)
  1. VELCADE [Suspect]
     Indication: CHRONIC LYMPHOCYTIC LEUKAEMIA
     Dosage: 2.3 MG, UNK, INTRAVENOUS
     Route: 042
     Dates: start: 20090424, end: 20090508
  2. CARMUSTINE [Suspect]
     Indication: CHRONIC LYMPHOCYTIC LEUKAEMIA
  3. ETOPOSIDE [Suspect]
     Indication: CHRONIC LYMPHOCYTIC LEUKAEMIA
  4. CYTARABINE [Suspect]
     Indication: CHRONIC LYMPHOCYTIC LEUKAEMIA
  5. MELPHALAN(MELPHALAN) TABLET [Suspect]
     Indication: CHRONIC LYMPHOCYTIC LEUKAEMIA
  6. RITUXIMAB(RITUXIMAB) INJECTIO [Suspect]
     Indication: CHRONIC LYMPHOCYTIC LEUKAEMIA
  7. THYMOGLOBULIN [Suspect]

REACTIONS (15)
  - BLOOD CALCIUM DECREASED [None]
  - BLOOD PRESSURE SYSTOLIC INCREASED [None]
  - CHOLESTASIS [None]
  - DIALYSIS [None]
  - ELECTROCARDIOGRAM ST SEGMENT DEPRESSION [None]
  - GRAFT VERSUS HOST DISEASE [None]
  - HEPATIC FAILURE [None]
  - HYPOTENSION [None]
  - MULTI-ORGAN FAILURE [None]
  - RENAL FAILURE ACUTE [None]
  - RENAL INJURY [None]
  - SMALL INTESTINAL OBSTRUCTION [None]
  - STEM CELL TRANSPLANT [None]
  - TACHYARRHYTHMIA [None]
  - THROMBOTIC THROMBOCYTOPENIC PURPURA [None]
